FAERS Safety Report 4883586-2 (Version None)
Quarter: 2006Q1

REPORT INFORMATION
  Report Type: 
  Country: None (occurrence: None)
  Receive Date: 20060118
  Receipt Date: 20051027
  Transmission Date: 20060701
  Serious: Yes (Hospitalization, Disabling)
  Sender: FDA-Public Use
  Company Number: US-MERCK-0510USA09929

PATIENT
  Age: 48 Year
  Sex: Female
  Weight: 57 kg

DRUGS (9)
  1. VIOXX [Suspect]
     Indication: ARTHRITIS
     Route: 048
     Dates: start: 20010926, end: 20040901
  2. PREDNISONE [Concomitant]
     Route: 065
  3. PLAQUENIL [Concomitant]
     Route: 065
  4. ASPIRIN [Concomitant]
     Route: 065
  5. ESTRADIOL AND ESTRIOL AND ESTRONE AND PROGESTERONE [Concomitant]
     Route: 065
  6. PROMETRIUM [Concomitant]
     Route: 065
  7. ZITHROMAX [Concomitant]
     Route: 065
  8. HYDROXYCHLOROQUINE SULFATE [Concomitant]
     Route: 065
  9. AYGESTIN [Concomitant]
     Route: 065

REACTIONS (4)
  - CEREBROVASCULAR ACCIDENT [None]
  - CHEST PAIN [None]
  - DEEP VEIN THROMBOSIS [None]
  - INJURY [None]
